FAERS Safety Report 5647651-4 (Version None)
Quarter: 2008Q1

REPORT INFORMATION
  Report Type: 
  Country: None (occurrence: None)
  Receive Date: 20080303
  Receipt Date: 20080220
  Transmission Date: 20080703
  Serious: Yes (Other)
  Sender: FDA-Public Use
  Company Number: US-PFIZER INC-2008017003

PATIENT
  Sex: Female
  Weight: 55 kg

DRUGS (5)
  1. LYRICA [Suspect]
     Indication: POST HERPETIC NEURALGIA
  2. LEVOTHYROXINE SODIUM [Concomitant]
  3. BENAZEPRIL HYDROCHLORIDE [Concomitant]
  4. CRESTOR [Concomitant]
  5. VITAMINS [Concomitant]

REACTIONS (2)
  - DIZZINESS [None]
  - VISION BLURRED [None]
